FAERS Safety Report 15556558 (Version 2)
Quarter: 2019Q2

REPORT INFORMATION
  Report Type: Spontaneous
  Country: US (occurrence: US)
  Receive Date: 20181026
  Receipt Date: 20190517
  Transmission Date: 20190711
  Serious: Yes (Other)
  Sender: FDA-Public Use
  Company Number: US-ASTRAZENECA-2018SF38896

PATIENT
  Sex: Female
  Weight: 91.6 kg

DRUGS (38)
  1. PROTONIX [Suspect]
     Active Substance: PANTOPRAZOLE SODIUM
     Dosage: 40 MG DAILY
     Route: 065
     Dates: start: 2010, end: 2013
  2. MECLIZINE [Concomitant]
     Active Substance: MECLIZINE HYDROCHLORIDE
  3. NAPROXEN. [Concomitant]
     Active Substance: NAPROXEN
  4. NYSTATIN. [Concomitant]
     Active Substance: NYSTATIN
  5. PRAVASTATIN. [Concomitant]
     Active Substance: PRAVASTATIN
  6. BENZONATATE. [Concomitant]
     Active Substance: BENZONATATE
  7. CYTOMEL [Concomitant]
     Active Substance: LIOTHYRONINE SODIUM
  8. CLONIDINE. [Concomitant]
     Active Substance: CLONIDINE
  9. GABAPENTIN. [Concomitant]
     Active Substance: GABAPENTIN
  10. PIOGLITAZONE. [Concomitant]
     Active Substance: PIOGLITAZONE
  11. PROTONIX [Suspect]
     Active Substance: PANTOPRAZOLE SODIUM
     Route: 065
     Dates: start: 2007, end: 2018
  12. ATORVASTATIN [Concomitant]
     Active Substance: ATORVASTATIN
  13. CEPHALEXIN. [Concomitant]
     Active Substance: CEPHALEXIN
  14. FLUTICASONE. [Concomitant]
     Active Substance: FLUTICASONE
  15. ATENOLOL. [Concomitant]
     Active Substance: ATENOLOL
  16. AZITHROMYCIN ANHYDROUS. [Concomitant]
     Active Substance: AZITHROMYCIN ANHYDROUS
  17. HYDROCODONE [Concomitant]
     Active Substance: HYDROCODONE
  18. HYDROXYZINE [Concomitant]
     Active Substance: HYDROXYZINE HYDROCHLORIDE
  19. LOSARTAN. [Concomitant]
     Active Substance: LOSARTAN
  20. TOPAMAX [Concomitant]
     Active Substance: TOPIRAMATE
  21. AMOXICILLIN. [Concomitant]
     Active Substance: AMOXICILLIN
  22. LEVOFLOXACIN. [Concomitant]
     Active Substance: LEVOFLOXACIN
  23. VOLTAREN [Concomitant]
     Active Substance: DICLOFENAC SODIUM
  24. CLARITHROMYCIN. [Concomitant]
     Active Substance: CLARITHROMYCIN
  25. A-HYDROCORT [Concomitant]
     Active Substance: HYDROCORTISONE SODIUM SUCCINATE
  26. OXYCODONE [Concomitant]
     Active Substance: OXYCODONE
  27. PROMETHEGAN [Concomitant]
     Active Substance: PROMETHAZINE HYDROCHLORIDE
  28. PROPRANOLOL [Concomitant]
     Active Substance: PROPRANOLOL HYDROCHLORIDE
  29. TIROSINT [Concomitant]
     Active Substance: LEVOTHYROXINE SODIUM
  30. AMLODIPINE [Concomitant]
     Active Substance: AMLODIPINE BESYLATE
  31. AMOX [Concomitant]
     Active Substance: UNSPECIFIED INGREDIENT
  32. LEVOTHYROXINE. [Concomitant]
     Active Substance: LEVOTHYROXINE
  33. PREDNISONE. [Concomitant]
     Active Substance: PREDNISONE
  34. VENTOLIN [Concomitant]
     Active Substance: ALBUTEROL SULFATE
  35. NEXIUM [Suspect]
     Active Substance: ESOMEPRAZOLE MAGNESIUM
     Route: 048
     Dates: start: 2007, end: 2018
  36. NEXIUM [Suspect]
     Active Substance: ESOMEPRAZOLE MAGNESIUM
     Dosage: 40 MG DAILY
     Route: 048
     Dates: start: 2007, end: 2010
  37. LANSOPRAZOLE. [Suspect]
     Active Substance: LANSOPRAZOLE
     Dosage: 30 MG DAILY
     Route: 065
     Dates: start: 2013, end: 2019
  38. LISINOPRIL. [Concomitant]
     Active Substance: LISINOPRIL

REACTIONS (1)
  - Chronic kidney disease [Not Recovered/Not Resolved]
